FAERS Safety Report 7312952-0 (Version None)
Quarter: 2011Q1

REPORT INFORMATION
  Report Type: 
  Country: None (occurrence: None)
  Receive Date: 20110224
  Receipt Date: 20110211
  Transmission Date: 20110831
  Serious: Yes (Other)
  Sender: FDA-Public Use
  Company Number: CA-GENENTECH-226859

PATIENT
  Sex: Female
  Weight: 62 kg

DRUGS (8)
  1. ANTIHISTAMINE (UNK INGREDIENTS) [Concomitant]
  2. ANTIHISTAMINE (UNK INGREDIENTS) [Concomitant]
     Indication: PRODUCT USED FOR UNKNOWN INDICATION
  3. PREDNISONE [Concomitant]
     Indication: PRODUCT USED FOR UNKNOWN INDICATION
  4. SYMBICORT [Concomitant]
     Indication: PRODUCT USED FOR UNKNOWN INDICATION
  5. FOSAMAX [Concomitant]
     Indication: PRODUCT USED FOR UNKNOWN INDICATION
  6. XOLAIR [Suspect]
     Indication: ASTHMA
     Dosage: 225 UNK, Q2W
     Route: 058
     Dates: start: 20050921, end: 20051129
  7. XOLAIR [Suspect]
     Dosage: 225 MG, UNK
     Route: 058
     Dates: end: 20060619
  8. CARBOCAL D [Concomitant]
     Indication: PRODUCT USED FOR UNKNOWN INDICATION

REACTIONS (4)
  - PAIN IN EXTREMITY [None]
  - PRURITUS [None]
  - ECZEMA [None]
  - RASH [None]
